FAERS Safety Report 5378653-3 (Version None)
Quarter: 2007Q3

REPORT INFORMATION
  Report Type: 
  Country: None (occurrence: None)
  Receive Date: 20070702
  Receipt Date: 20070702
  Transmission Date: 20080115
  Serious: Yes (Hospitalization, Other)
  Sender: FDA-Public Use
  Company Number: None

PATIENT
  Sex: Male
  Weight: 15.5 kg

DRUGS (1)
  1. AMOXICILLIN [Suspect]
     Dates: start: 20070226, end: 20070307

REACTIONS (5)
  - ANAPHYLACTIC REACTION [None]
  - ERYTHEMA MULTIFORME [None]
  - NO THERAPEUTIC RESPONSE [None]
  - PAIN IN EXTREMITY [None]
  - POLYARTHRITIS [None]
